FAERS Safety Report 4631559-7 (Version None)
Quarter: 2005Q2

REPORT INFORMATION
  Report Type: 
  Country: None (occurrence: None)
  Receive Date: 20050407
  Receipt Date: 20050320
  Transmission Date: 20051028
  Serious: Yes (Hospitalization)
  Sender: FDA-Public Use
  Company Number: 2005043001

PATIENT
  Age: 54 Year
  Sex: Male
  Weight: 61 kg

DRUGS (8)
  1. NEURONTIN [Suspect]
     Indication: POLYNEUROPATHY
     Dosage: 600 MG (300 MG, 2 IN 1 D), ORAL
     Route: 048
     Dates: start: 20040201
  2. CLONAZEPAM [Suspect]
     Indication: POLYNEUROPATHY
     Dosage: 10 MG, (1 IN 1 D), ORAL
     Route: 048
     Dates: start: 20000201
  3. INSULIN GLARGINE (INSULIN GLARGINE) [Concomitant]
  4. INSULIN ASPART (INSULIN ASPART) [Concomitant]
  5. RAMIPRIL [Concomitant]
  6. ACETYLSALICYLIC ACID SRT [Concomitant]
  7. TRIMETAZIDINE HYDROCHLORIDE (TRIMETAZIDINE HYDROCHLORIDE) [Concomitant]
  8. DIOSMIN (DIOSMIN) [Concomitant]

REACTIONS (2)
  - DRUG INTERACTION [None]
  - VITAMIN B12 DEFICIENCY [None]
